FAERS Safety Report 13364927 (Version 1)
Quarter: 2017Q1

REPORT INFORMATION
  Report Type: Spontaneous
  Country: US (occurrence: US)
  Receive Date: 20170323
  Receipt Date: 20170323
  Transmission Date: 20170429
  Serious: No
  Sender: FDA-Public Use
  Company Number: US-ROCHE-1448087

PATIENT
  Age: 53 Year
  Sex: Female
  Weight: 54.48 kg

DRUGS (7)
  1. SYMBICORT [Concomitant]
     Active Substance: BUDESONIDE\FORMOTEROL FUMARATE DIHYDRATE
     Dosage: 160/80, 2PUFF BUD
     Route: 048
  2. SINGULAIR [Concomitant]
     Active Substance: MONTELUKAST SODIUM
     Indication: ASTHMA
     Route: 048
  3. XYZAL [Concomitant]
     Active Substance: LEVOCETIRIZINE DIHYDROCHLORIDE
  4. LIPITOR [Concomitant]
     Active Substance: ATORVASTATIN CALCIUM
  5. XOLAIR [Suspect]
     Active Substance: OMALIZUMAB
     Indication: ASTHMA
     Route: 058
     Dates: start: 201405
  6. TETRACYCLINES [Concomitant]
     Active Substance: UNSPECIFIED INGREDIENT
  7. FLONASE [Concomitant]
     Active Substance: FLUTICASONE PROPIONATE
     Indication: HYPERSENSITIVITY
     Dosage: AS NEEDED
     Route: 045

REACTIONS (5)
  - Pain [Unknown]
  - Ear pain [Recovered/Resolved]
  - Influenza like illness [Unknown]
  - Ear infection [Recovered/Resolved]
  - Nail growth abnormal [Unknown]

NARRATIVE: CASE EVENT DATE: 20140703
